FAERS Safety Report 20460708 (Version 1)
Quarter: 2022Q1

REPORT INFORMATION
  Report Type: Spontaneous
  Country: FR (occurrence: None)
  Receive Date: 20220211
  Receipt Date: 20220211
  Transmission Date: 20220423
  Serious: Yes (Hospitalization)
  Sender: FDA-Public Use
  Company Number: 2022A056133

PATIENT
  Age: 69 Year
  Sex: Female
  Weight: 77.3 kg

DRUGS (20)
  1. IMFINZI [Suspect]
     Active Substance: DURVALUMAB
     Indication: Small cell lung cancer
     Route: 042
     Dates: start: 20210811, end: 20210901
  2. NEBIVOLOL [Concomitant]
     Active Substance: NEBIVOLOL
  3. PANTOPRAZOLE [Concomitant]
     Active Substance: PANTOPRAZOLE
  4. ZOPICLONE [Concomitant]
     Active Substance: ZOPICLONE
  5. SPIRIVA [Concomitant]
     Active Substance: TIOTROPIUM BROMIDE MONOHYDRATE
  6. LOVENOX [Concomitant]
     Active Substance: ENOXAPARIN SODIUM
  7. INDACATEROL [Concomitant]
     Active Substance: INDACATEROL
  8. HUMALOG [Concomitant]
     Active Substance: INSULIN LISPRO
  9. CARBOPLATIN [Concomitant]
     Active Substance: CARBOPLATIN
  10. PHLOROGLUCINOL [Concomitant]
     Active Substance: PHLOROGLUCINOL
  11. FENOFIBRATE [Concomitant]
     Active Substance: FENOFIBRATE
  12. GAVISCON [Concomitant]
     Active Substance: ALUMINUM HYDROXIDE\MAGNESIUM CARBONATE
  13. KARDEGIC [Concomitant]
     Active Substance: ASPIRIN DL-LYSINE
  14. LOPERAMIDE HYDROCHLORIDE [Concomitant]
     Active Substance: LOPERAMIDE HYDROCHLORIDE
  15. ALPRAZOLAM [Concomitant]
     Active Substance: ALPRAZOLAM
  16. JANUVIA [Concomitant]
     Active Substance: SITAGLIPTIN PHOSPHATE
  17. ETOPOSIDE [Concomitant]
     Active Substance: ETOPOSIDE
  18. METFORMIN HYDROCHLORIDE [Concomitant]
     Active Substance: METFORMIN HYDROCHLORIDE
  19. INSULIN GLARGINE [Concomitant]
     Active Substance: INSULIN GLARGINE
  20. TOPALGIC [Concomitant]

REACTIONS (1)
  - Immune-mediated enterocolitis [Recovered/Resolved]

NARRATIVE: CASE EVENT DATE: 20211014
